FAERS Safety Report 8406462 (Version 2)
Quarter: 2013Q4

REPORT INFORMATION
  Report Type: Spontaneous
  Country: US (occurrence: US)
  Receive Date: 20120215
  Receipt Date: 20131230
  Transmission Date: 20140711
  Serious: Yes (Other)
  Sender: FDA-Public Use
  Company Number: US-BAYER-2012-013702

PATIENT
  Age: 32 Year
  Sex: Female

DRUGS (6)
  1. YAZ [Suspect]
     Dosage: UNK
     Dates: start: 200904, end: 200911
  2. YASMIN [Suspect]
     Dosage: UNK
     Dates: start: 200904, end: 200911
  3. OCELLA [Suspect]
     Dosage: UNK
     Dates: start: 200904, end: 200911
  4. HYOSCYAMINE SULFATE [Concomitant]
     Dosage: UNK
     Dates: start: 20091023
  5. LEVSIN [Concomitant]
     Dosage: 0.125 MG, EVERY FOUR HOURS
     Route: 048
     Dates: start: 20091023
  6. LEXAPRO [Concomitant]
     Dosage: UNK
     Dates: start: 20091208

REACTIONS (7)
  - Gallbladder disorder [None]
  - Cholecystitis chronic [None]
  - Pain [None]
  - Injury [None]
  - Anxiety [None]
  - Anhedonia [None]
  - Gastrointestinal disorder [None]
